FAERS Safety Report 8899126 (Version 1)
Quarter: 2012Q4

REPORT INFORMATION
  Report Type: 
  Country: US (occurrence: US)
  Receive Date: 20121108
  Receipt Date: 20121108
  Transmission Date: 20130627
  Serious: No
  Sender: FDA-Public Use
  Company Number: US-AMGEN-USASP2012034961

PATIENT
  Age: 66 Year
  Sex: Female
  Weight: 122 kg

DRUGS (34)
  1. ENBREL [Suspect]
     Indication: PRODUCT USED FOR UNKNOWN INDICATION
     Dosage: 50 mg, qwk
     Route: 058
  2. FOLBEE [Concomitant]
     Dosage: UNK
  3. TYLENOL /00020001/ [Concomitant]
     Dosage: 650 mg, UNK
  4. LORTAB                             /00607101/ [Concomitant]
     Dosage: UNK
  5. VITAMIN C                          /00008001/ [Concomitant]
     Dosage: 500 mg, UNK
  6. LUMIGAN [Concomitant]
     Dosage: 0.01 %, UNK
  7. ALPHAGAN P [Concomitant]
     Dosage: 0.1 %, UNK
  8. SYMBICORT [Concomitant]
     Dosage: UNK
  9. CALCIUM +D                         /00188401/ [Concomitant]
     Dosage: UNK
  10. COREG [Concomitant]
     Dosage: 25 mg, UNK
  11. CELEBREX [Concomitant]
     Dosage: 200 mg, UNK
  12. GLUCOSAMINE + CHONDROITIN          /01430901/ [Concomitant]
     Dosage: UNK
  13. COLACE [Concomitant]
     Dosage: 100 mg, UNK
  14. TRUSOPT [Concomitant]
     Dosage: 2 %, UNK
     Route: 048
  15. FENOFIBRATE [Concomitant]
     Dosage: 67 mg, UNK
  16. FEXOFENADINE [Concomitant]
     Dosage: 180 mg, UNK
  17. FLUTICASONE [Concomitant]
     Dosage: 50 mug, UNK
  18. LANTUS [Concomitant]
     Dosage: UNK
  19. IMIPRAMINE HCL [Concomitant]
     Dosage: 50 mg, UNK
  20. FUROSEMIDE [Concomitant]
     Dosage: 40 mg, UNK
  21. HUMALOG [Concomitant]
     Dosage: 100 ml, UNK
  22. AVAPRO [Concomitant]
     Dosage: 150 mg, UNK
  23. LANSOPRAZOLE [Concomitant]
     Dosage: 15 mg, UNK
  24. METHOTREXATE [Concomitant]
     Dosage: 2.5 mg, UNK
  25. PATANASE [Concomitant]
     Dosage: 0.6 %, UNK
  26. PREDNISONE [Concomitant]
     Dosage: 5 mg, UNK
  27. ZANTAC [Concomitant]
     Dosage: 300 mg, UNK
  28. ACTONEL [Concomitant]
     Dosage: 75 mg, UNK
  29. FISH OIL [Concomitant]
     Dosage: UNK
  30. MURO 128                           /00075401/ [Concomitant]
     Dosage: 5 %, UNK
     Route: 048
  31. ALDACTONE                          /00006201/ [Concomitant]
     Dosage: 25 mg, UNK
  32. TRAMADOL HCL [Concomitant]
     Dosage: 50 mg, UNK
  33. ZOLPIDEM [Concomitant]
     Dosage: 5 mg, UNK
  34. SIMVASTATIN [Concomitant]
     Dosage: 10 mg, UNK

REACTIONS (2)
  - Fall [Unknown]
  - Arthralgia [Unknown]
